FAERS Safety Report 8445065-5 (Version None)
Quarter: 2012Q2

REPORT INFORMATION
  Report Type: 
  Country: None (occurrence: None)
  Receive Date: 20120618
  Receipt Date: 20110506
  Transmission Date: 20120825
  Serious: No
  Sender: FDA-Public Use
  Company Number: US-FOUGERA-2012FO000100

PATIENT
  Age: 91 Year
  Sex: Female
  Weight: 58.97 kg

DRUGS (1)
  1. KETOCONAZOLE [Suspect]
     Indication: FUNGAL INFECTION
     Route: 061
     Dates: start: 20110501

REACTIONS (2)
  - SKIN IRRITATION [None]
  - RASH [None]
